FAERS Safety Report 18699751 (Version 2)
Quarter: 2021Q2

REPORT INFORMATION
  Report Type: Spontaneous
  Country: US (occurrence: US)
  Receive Date: 20210104
  Receipt Date: 20210408
  Transmission Date: 20210717
  Serious: Yes (Other)
  Sender: FDA-Public Use
  Company Number: US-JNJFOC-20201252318

PATIENT
  Sex: Male

DRUGS (1)
  1. DARZALEX [Suspect]
     Active Substance: DARATUMUMAB
     Indication: PLASMA CELL MYELOMA
     Route: 065

REACTIONS (5)
  - Pain [Unknown]
  - Ejection fraction decreased [Unknown]
  - Plasma cell myeloma [Unknown]
  - Monoclonal immunoglobulin increased [Unknown]
  - Therapeutic product effect incomplete [Unknown]
